FAERS Safety Report 4365007-1 (Version None)
Quarter: 2004Q2

REPORT INFORMATION
  Report Type: 
  Country: None (occurrence: None)
  Receive Date: 20040521
  Receipt Date: 20040511
  Transmission Date: 20050107
  Serious: Yes (Hospitalization)
  Sender: FDA-Public Use
  Company Number: 04P-056-0260491-00

PATIENT
  Age: 71 Year
  Sex: Male

DRUGS (3)
  1. BIAXIN [Suspect]
     Indication: BRONCHOPNEUMOPATHY
     Dosage: 500 MG, PER ORAL
     Route: 048
     Dates: start: 20040220, end: 20040224
  2. CO-ADVIL [Suspect]
     Indication: BRONCHOPNEUMOPATHY
     Dosage: 230 MG, PER ORAL
     Route: 048
     Dates: start: 20040220, end: 20040224
  3. TAMSULOSIN HYDROCHLORIDE [Concomitant]

REACTIONS (2)
  - GENERALISED ERYTHEMA [None]
  - PURPURA [None]
